FAERS Safety Report 13598059 (Version 1)
Quarter: 2017Q2

REPORT INFORMATION
  Report Type: Spontaneous
  Country: SE (occurrence: SE)
  Receive Date: 20170531
  Receipt Date: 20170531
  Transmission Date: 20170830
  Serious: Yes (Hospitalization)
  Sender: FDA-Public Use
  Company Number: SE-PFIZER INC-2017231032

PATIENT
  Age: 33 Year
  Sex: Male

DRUGS (7)
  1. PANODIL [Concomitant]
     Active Substance: ACETAMINOPHEN
     Dosage: UNK
  2. STESOLID [Suspect]
     Active Substance: DIAZEPAM
     Indication: ANXIETY
     Dosage: 80MG, SINGLE DOSE
     Route: 048
     Dates: start: 20150314, end: 20150314
  3. NALOXON B. BRAUN [Concomitant]
     Dosage: UNK
  4. TRIOBE /01079901/ [Concomitant]
     Dosage: UNK
  5. XANOR [Suspect]
     Active Substance: ALPRAZOLAM
     Indication: ANXIETY
     Dosage: 48MG SINGLE DOSE
     Route: 048
     Dates: start: 20150314, end: 20150314
  6. METADON ABCUR [Suspect]
     Active Substance: METHADONE HYDROCHLORIDE
     Indication: ANXIETY
     Dosage: 120MG, SINGLE DOSE
     Route: 048
     Dates: start: 20150314, end: 20150314
  7. ROCEPHALIN [Concomitant]
     Active Substance: CEFTRIAXONE
     Dosage: UNK

REACTIONS (2)
  - Intentional overdose [Recovered/Resolved with Sequelae]
  - Toxicity to various agents [Recovered/Resolved]

NARRATIVE: CASE EVENT DATE: 20150314
